FAERS Safety Report 10339555 (Version 1)
Quarter: 2014Q3

REPORT INFORMATION
  Report Type: Spontaneous
  Country: US (occurrence: None)
  Receive Date: 20140723
  Receipt Date: 20140723
  Transmission Date: 20150326
  Serious: No
  Sender: FDA-Public Use
  Company Number: None

PATIENT
  Age: 78 Year
  Sex: Female
  Weight: 64.41 kg

DRUGS (5)
  1. MOBIC [Concomitant]
     Active Substance: MELOXICAM
  2. MULTI VITAMINS [Concomitant]
  3. MAGNESIUM OXIDE. [Concomitant]
     Active Substance: MAGNESIUM OXIDE
  4. FISH OIL [Concomitant]
     Active Substance: FISH OIL
  5. NITROFURANTOIN. [Suspect]
     Active Substance: NITROFURANTOIN
     Indication: URINARY TRACT INFECTION
     Dosage: 14 CAP
     Route: 048
     Dates: start: 20140516, end: 20140517

REACTIONS (4)
  - Chills [None]
  - Pyrexia [None]
  - Respiratory disorder [None]
  - Malaise [None]

NARRATIVE: CASE EVENT DATE: 20140516
